FAERS Safety Report 5186649-X (Version None)
Quarter: 2006Q4

REPORT INFORMATION
  Report Type: 
  Country: None (occurrence: None)
  Receive Date: 20061220
  Receipt Date: 20060223
  Transmission Date: 20070319
  Serious: No
  Sender: FDA-Public Use
  Company Number: US-AMGEN-US170127

PATIENT
  Sex: Female

DRUGS (3)
  1. ENBREL [Suspect]
     Indication: RHEUMATOID ARTHRITIS
     Route: 065
     Dates: start: 20050425
  2. ALPRAZOLAM [Concomitant]
     Route: 065
  3. DURAGESIC-100 [Concomitant]
     Route: 065

REACTIONS (2)
  - AMNESIA [None]
  - LABYRINTHITIS [None]
